FAERS Safety Report 5023695-0 (Version None)
Quarter: 2006Q2

REPORT INFORMATION
  Report Type: 
  Country: None (occurrence: None)
  Receive Date: 20060606
  Receipt Date: 20060522
  Transmission Date: 20061013
  Serious: Yes (Other)
  Sender: FDA-Public Use
  Company Number: 0600777US

PATIENT
  Age: 45 Year
  Sex: Female

DRUGS (1)
  1. BOTOX [Suspect]
     Indication: ANAL FISSURE
     Dosage: 50 UNITS, SINGLE, INTRAMUSCULAR
     Route: 030

REACTIONS (2)
  - DEFAECATION URGENCY [None]
  - FAECAL INCONTINENCE [None]
